FAERS Safety Report 12779737 (Version 1)
Quarter: 2016Q3

REPORT INFORMATION
  Report Type: Spontaneous
  Country: US (occurrence: US)
  Receive Date: 20160924
  Receipt Date: 20160924
  Transmission Date: 20161109
  Serious: Yes (Life-Threatening, Hospitalization, Disabling, Other)
  Sender: FDA-Public Use
  Company Number: None

PATIENT
  Age: 88 Year
  Sex: Female
  Weight: 72 kg

DRUGS (7)
  1. REMERON [Concomitant]
     Active Substance: MIRTAZAPINE
  2. CELEXA [Concomitant]
     Active Substance: CITALOPRAM HYDROBROMIDE
  3. LORAZEPAM. [Concomitant]
     Active Substance: LORAZEPAM
  4. DILANTIN [Concomitant]
     Active Substance: PHENYTOIN
  5. CELEXA [Suspect]
     Active Substance: CITALOPRAM HYDROBROMIDE
     Indication: ANXIETY
     Route: 048
     Dates: start: 20150101, end: 20150605
  6. PROBIOTICS [Concomitant]
     Active Substance: PROBIOTICS NOS
  7. VITAMIN D [Concomitant]
     Active Substance: CHOLECALCIFEROL

REACTIONS (7)
  - Pelvic fracture [None]
  - Arrhythmia [None]
  - Fall [None]
  - Loss of consciousness [None]
  - Upper limb fracture [None]
  - Incorrect dose administered [None]
  - Cervical vertebral fracture [None]

NARRATIVE: CASE EVENT DATE: 20150601
